FAERS Safety Report 21709877 (Version 1)
Quarter: 2022Q4

REPORT INFORMATION
  Report Type: Spontaneous
  Country: BR (occurrence: BR)
  Receive Date: 20221210
  Receipt Date: 20221210
  Transmission Date: 20230112
  Serious: Yes (Other)
  Sender: FDA-Public Use
  Company Number: BR-TEVA BRAZIL-2022-BR-2824487

PATIENT
  Age: 64 Year
  Sex: Female

DRUGS (2)
  1. NEOTIGASON [Suspect]
     Active Substance: ACITRETIN
     Indication: Skin papilloma
     Dosage: 75 MILLIGRAM DAILY;
     Route: 048
  2. NEOTIGASON [Suspect]
     Active Substance: ACITRETIN
     Dosage: 80 MILLIGRAM DAILY;
     Route: 048

REACTIONS (4)
  - Neoplasm progression [Not Recovered/Not Resolved]
  - Pain [Not Recovered/Not Resolved]
  - Product use issue [Unknown]
  - Off label use [Unknown]
